FAERS Safety Report 16826207 (Version 1)
Quarter: 2019Q4

REPORT INFORMATION
  Report Type: Spontaneous
  Country: US (occurrence: US)
  Receive Date: 20190918
  Receipt Date: 20190918
  Transmission Date: 20200122
  Serious: Yes (Other)
  Sender: FDA-Public Use
  Company Number: None

PATIENT
  Sex: Female
  Weight: 130.95 kg

DRUGS (14)
  1. MORPHINE SULFATE ORAL SOLUTION 10MG/5ML [Concomitant]
  2. OXYCODONE HCL ORAL TABLET 5MG [Concomitant]
  3. MELATONIN ORAL TABLET 3MG [Concomitant]
  4. OMEPRAZOLE ORAL CAPSULE DR 10MG [Concomitant]
  5. RANITIDINE HCL ORAL CAPSULE 150MG [Concomitant]
  6. LYRICA ORAL CAPSULE 25MG [Concomitant]
  7. AMITRIPTYLINE HCL ORAL TABLET 10MG [Concomitant]
  8. APLENZIN ORAL TABLET ER 24 HOUR 348 [Concomitant]
  9. BACLOFEN ORAL TABLET 10MG [Concomitant]
  10. ROSUVASTATIN CALCIUM ORAL TAB 10MG [Concomitant]
  11. AUSTEDO [Suspect]
     Active Substance: DEUTETRABENAZINE
     Indication: DYSKINESIA
     Route: 048
     Dates: start: 20190710
  12. SINGULAIR ORAL TAB 10MG [Concomitant]
  13. XARELTO ORAL TABLET 20MG [Concomitant]
  14. LORAZEPAM ORAL TABLET 0.5MG [Concomitant]

REACTIONS (2)
  - Vomiting [None]
  - Nausea [None]
